FAERS Safety Report 13905517 (Version 1)
Quarter: 2017Q3

REPORT INFORMATION
  Report Type: Spontaneous
  Country: US (occurrence: None)
  Receive Date: 20170821
  Receipt Date: 20170821
  Transmission Date: 20171127
  Serious: No
  Sender: FDA-Public Use
  Company Number: None

PATIENT
  Age: 50 Year
  Sex: Female
  Weight: 72.57 kg

DRUGS (9)
  1. DICYCLOMINE GENERIC FOR BENTYL [Concomitant]
  2. ATORVASTATIN CALCIUM GENERIC FOR LIPITOR [Suspect]
     Active Substance: ATORVASTATIN CALCIUM
     Indication: BLOOD CHOLESTEROL ABNORMAL
     Route: 048
     Dates: start: 20170706, end: 20170718
  3. NAPROXEN GENERIC FOR NAPROSY [Suspect]
     Active Substance: NAPROXEN
     Indication: ARTHRITIS
  4. VITAMIN D3 [Concomitant]
     Active Substance: CHOLECALCIFEROL
  5. OMEGA-3 FISH OIL [Concomitant]
     Active Substance: FISH OIL\OMEGA-3 FATTY ACIDS
  6. LOSARTAN POTASSIUM GENERIC FOR HYZAAR [Concomitant]
  7. ATORVASTATIN CALCIUM GENERIC FOR LIPITOR [Suspect]
     Active Substance: ATORVASTATIN CALCIUM
     Indication: ARTHRITIS
     Route: 048
     Dates: start: 20170706, end: 20170718
  8. ATORVASTATIN CALCIUM GENERIC FOR LIPITOR [Suspect]
     Active Substance: ATORVASTATIN CALCIUM
     Indication: HYPERTENSION
     Route: 048
     Dates: start: 20170706, end: 20170718
  9. GARLIC. [Concomitant]
     Active Substance: GARLIC

REACTIONS (4)
  - Product substitution issue [None]
  - Malaise [None]
  - Abdominal pain upper [None]
  - Haematochezia [None]
